FAERS Safety Report 4415169-2 (Version None)
Quarter: 2004Q3

REPORT INFORMATION
  Report Type: 
  Country: None (occurrence: None)
  Receive Date: 20040804
  Receipt Date: 20040726
  Transmission Date: 20050211
  Serious: Yes (Hospitalization)
  Sender: FDA-Public Use
  Company Number: DE-MERCK-0407DEU00197

PATIENT
  Age: 90 Year
  Sex: Female
  Weight: 59 kg

DRUGS (8)
  1. ASPIRIN [Concomitant]
     Indication: PROPHYLAXIS
     Route: 048
  2. DEXPANTHENOL [Concomitant]
     Indication: GLAUCOMA
     Route: 047
     Dates: start: 20040101
  3. DIGITOXIN [Suspect]
     Indication: CARDIAC FAILURE CONGESTIVE
     Route: 048
     Dates: start: 19970101, end: 20040325
  4. FENTANYL [Suspect]
     Indication: ISCHAEMIA
     Route: 061
  5. FENTANYL [Suspect]
     Indication: PAIN
     Route: 061
  6. HYPROMELLOSE [Concomitant]
     Route: 047
     Dates: start: 20040101
  7. LACTULOSE [Concomitant]
     Indication: CONSTIPATION
     Route: 048
  8. TIMPILO [Suspect]
     Indication: GLAUCOMA
     Route: 047
     Dates: start: 20040101

REACTIONS (5)
  - BRADYCARDIA [None]
  - CHEST PAIN [None]
  - DIABETES MELLITUS INADEQUATE CONTROL [None]
  - NOSOCOMIAL INFECTION [None]
  - URINARY TRACT INFECTION [None]
